FAERS Safety Report 18078808 (Version 1)
Quarter: 2020Q3

REPORT INFORMATION
  Report Type: Spontaneous
  Country: US (occurrence: US)
  Receive Date: 20200727
  Receipt Date: 20200727
  Transmission Date: 20201103
  Serious: Yes (Other)
  Sender: FDA-Public Use
  Company Number: None

PATIENT
  Age: 63 Year
  Sex: Male
  Weight: 92.7 kg

DRUGS (9)
  1. HYDROCHLOROTHIAZIDE 25 MG DAILY [Concomitant]
     Dates: start: 20200617
  2. VARDENAFIL 20 MG AS NEEDED [Concomitant]
     Dates: start: 20191108
  3. AMLODIPINE 10 MG DAILY [Concomitant]
     Dates: start: 20191108
  4. ASPIRIN 81 MG DAILY [Concomitant]
  5. MELOXICAM 7.5 MG TWICE DAILY [Concomitant]
     Dates: start: 20200720
  6. DEPO?TESTOTERONE 200MG/ML INJ EVERY 7 DAYS [Concomitant]
     Dates: start: 20191108
  7. ESOMEPRAZOLE AS NEEDED [Concomitant]
     Dates: start: 20160321
  8. LOSARTAN 100 MG DAILY [Concomitant]
     Dates: start: 20200617
  9. RYBELSUS [Suspect]
     Active Substance: SEMAGLUTIDE
     Indication: DIABETES MELLITUS
     Route: 048
     Dates: start: 20200614, end: 20200706

REACTIONS (2)
  - Dizziness [None]
  - Vision blurred [None]

NARRATIVE: CASE EVENT DATE: 20200614
